FAERS Safety Report 15315535 (Version 1)
Quarter: 2018Q4

REPORT INFORMATION
  Report Type: Spontaneous
  Country: IT (occurrence: IT)
  Receive Date: 20180824
  Receipt Date: 20180824
  Transmission Date: 20190204
  Serious: Yes (Other)
  Sender: FDA-Public Use
  Company Number: IT-PFIZER INC-2018341719

PATIENT
  Age: 17 Year
  Sex: Male

DRUGS (8)
  1. URBASON [METHYLPREDNISOLONE] [Concomitant]
     Dosage: UNK
  2. MERREM [Suspect]
     Active Substance: MEROPENEM
     Indication: PNEUMONITIS
     Dosage: 800 MG, 1X/DAY
  3. KLACID [CLARITHROMYCIN] [Suspect]
     Active Substance: CLARITHROMYCIN
     Indication: PNEUMONITIS
     Dosage: 400 MG, 1X/DAY
  4. BACLOFEN. [Suspect]
     Active Substance: BACLOFEN
     Indication: PNEUMONITIS
     Dosage: 1 DF, 1X/DAY
  5. ZYVOXID [Suspect]
     Active Substance: LINEZOLID
     Indication: PNEUMONITIS
     Dosage: 600 MG, 1X/DAY
     Route: 042
     Dates: start: 20180222
  6. CLEXANE [Suspect]
     Active Substance: ENOXAPARIN SODIUM
     Dosage: 2000 KIU, 1X/DAY
     Route: 058
     Dates: start: 20180222
  7. DIPRIVAN [Suspect]
     Active Substance: PROPOFOL
     Indication: PNEUMONITIS
     Dosage: 2 %, SINGLE
     Dates: start: 20180222
  8. PANTORC [Concomitant]
     Active Substance: PANTOPRAZOLE SODIUM
     Dosage: UNK

REACTIONS (3)
  - Alanine aminotransferase increased [Recovering/Resolving]
  - Gamma-glutamyltransferase increased [Recovering/Resolving]
  - Aspartate aminotransferase increased [Recovering/Resolving]

NARRATIVE: CASE EVENT DATE: 20180226
